FAERS Safety Report 10730969 (Version 3)
Quarter: 2015Q1

REPORT INFORMATION
  Report Type: Report from Study
  Country: DE (occurrence: DE)
  Receive Date: 20150122
  Receipt Date: 20150323
  Transmission Date: 20150721
  Serious: Yes (Death, Other)
  Sender: FDA-Public Use
  Company Number: DE-ASTELLAS-2015US001977

PATIENT
  Sex: Female

DRUGS (1)
  1. ERLOTINIB [Suspect]
     Active Substance: ERLOTINIB
     Indication: LUNG NEOPLASM MALIGNANT
     Route: 065
     Dates: start: 200707

REACTIONS (3)
  - Acne [Recovered/Resolved]
  - Thrombocytopenia [Unknown]
  - Death [Fatal]
